FAERS Safety Report 19584232 (Version 1)
Quarter: 2021Q3

REPORT INFORMATION
  Report Type: Spontaneous
  Country: US (occurrence: US)
  Receive Date: 20210720
  Receipt Date: 20210720
  Transmission Date: 20211014
  Serious: No
  Sender: FDA-Public Use
  Company Number: US-JNJFOC-20210723705

PATIENT
  Age: 84 Year
  Sex: Male

DRUGS (4)
  1. COVID?19 VACCINE [Concomitant]
     Indication: IMMUNISATION
     Dosage: 1ST DOSE
     Route: 065
  2. ZYRTEC [Suspect]
     Active Substance: CETIRIZINE HYDROCHLORIDE
     Indication: VACCINATION COMPLICATION
     Route: 065
  3. PREDNISONE. [Concomitant]
     Active Substance: PREDNISONE
     Indication: VACCINATION COMPLICATION
     Route: 065
  4. COVID?19 VACCINE [Concomitant]
     Dosage: 2ND DOSE
     Route: 065

REACTIONS (2)
  - Product use in unapproved indication [Unknown]
  - Off label use [Unknown]
